FAERS Safety Report 6130203-X (Version None)
Quarter: 2009Q1

REPORT INFORMATION
  Report Type: 
  Country: None (occurrence: None)
  Receive Date: 20090324
  Receipt Date: 20090316
  Transmission Date: 20090719
  Serious: Yes (Hospitalization)
  Sender: FDA-Public Use
  Company Number: DE-ASTRAZENECA-2009PK00875

PATIENT
  Age: 79 Year
  Sex: Female

DRUGS (10)
  1. BELOC ZOK [Suspect]
     Indication: HYPERTENSION
     Route: 048
     Dates: end: 20081119
  2. ALLOPURINOL [Suspect]
     Indication: HYPERURICAEMIA
     Route: 048
     Dates: end: 20081118
  3. DIGITOXIN [Suspect]
     Indication: CARDIAC FAILURE
     Route: 048
     Dates: end: 20081119
  4. NIFEDIPINE [Suspect]
     Indication: HYPERTENSION
     Route: 048
     Dates: end: 20081120
  5. RASILEZ [Suspect]
     Indication: HYPERTENSION
     Route: 048
     Dates: start: 20080801
  6. TOREM [Suspect]
     Indication: OEDEMA
     Route: 048
  7. GLIMEPIRIDE [Concomitant]
     Indication: TYPE 2 DIABETES MELLITUS
     Route: 048
     Dates: end: 20081128
  8. ASPIRIN [Concomitant]
     Indication: PROPHYLAXIS
     Route: 048
  9. RAMIPRIL [Concomitant]
     Indication: HYPERTENSION
     Route: 048
  10. ACTRAPHANE 30/70 [Concomitant]
     Indication: TYPE 2 DIABETES MELLITUS
     Dosage: DOSE AS REQUIRED
     Route: 058

REACTIONS (2)
  - CARDIAC FAILURE [None]
  - GENERAL PHYSICAL HEALTH DETERIORATION [None]
